FAERS Safety Report 9328432 (Version 1)
Quarter: 2013Q2

REPORT INFORMATION
  Report Type: Spontaneous
  Country: US (occurrence: US)
  Receive Date: 20130604
  Receipt Date: 20130604
  Transmission Date: 20140414
  Serious: No
  Sender: FDA-Public Use
  Company Number: US-SANOFI-AVENTIS-2012SA059914

PATIENT
  Sex: Male

DRUGS (2)
  1. LANTUS [Suspect]
     Route: 058
  2. NOVOLOG [Suspect]
     Route: 065

REACTIONS (3)
  - Paranasal sinus hypersecretion [Unknown]
  - Increased upper airway secretion [Unknown]
  - Dyspnoea [Unknown]
